FAERS Safety Report 5723129-4 (Version None)
Quarter: 2008Q2

REPORT INFORMATION
  Report Type: 
  Country: None (occurrence: None)
  Receive Date: 20080425
  Receipt Date: 20080418
  Transmission Date: 20081010
  Serious: Yes (Hospitalization)
  Sender: FDA-Public Use
  Company Number: 2008SP004293

PATIENT
  Age: 63 Year
  Sex: Female

DRUGS (2)
  1. TEMOZOLOMIDE [Suspect]
     Indication: METASTATIC MALIGNANT MELANOMA
     Dosage: 240 MG; PO
     Route: 048
     Dates: start: 20080204, end: 20080310
  2. BEVACIZUMAB (BEVACIZUMAB) [Suspect]
     Indication: METASTATIC MALIGNANT MELANOMA
     Dosage: 550 IV
     Route: 042
     Dates: start: 20080204, end: 20080218

REACTIONS (3)
  - DISEASE PROGRESSION [None]
  - INFECTION [None]
  - LIVER DISORDER [None]
